FAERS Safety Report 7892103-4 (Version None)
Quarter: 2011Q4

REPORT INFORMATION
  Report Type: 
  Country: None (occurrence: None)
  Receive Date: 20111103
  Receipt Date: 20110815
  Transmission Date: 20120403
  Serious: No
  Sender: FDA-Public Use
  Company Number: US-AMGEN-USASP2011041359

PATIENT
  Age: 60 Year
  Sex: Male

DRUGS (1)
  1. ENBREL [Suspect]
     Indication: RHEUMATOID ARTHRITIS
     Dates: start: 20110616

REACTIONS (4)
  - INJECTION SITE PAIN [None]
  - INCREASED TENDENCY TO BRUISE [None]
  - BRONCHITIS [None]
  - EAR INFECTION [None]
